FAERS Safety Report 21181040 (Version 2)
Quarter: 2022Q4

REPORT INFORMATION
  Report Type: Report from Study
  Country: US (occurrence: US)
  Receive Date: 20220806
  Receipt Date: 20221027
  Transmission Date: 20230112
  Serious: No
  Sender: FDA-Public Use
  Company Number: US-SANOFI-01102887

PATIENT
  Age: 65 Year
  Sex: Female

DRUGS (19)
  1. AUBAGIO [Suspect]
     Active Substance: TERIFLUNOMIDE
     Indication: Multiple sclerosis
     Dosage: 7 MG, QD
     Route: 048
     Dates: start: 20220411
  2. PROTONIX [Suspect]
     Active Substance: PANTOPRAZOLE SODIUM
     Dosage: UNK
  3. LORATADINE [Concomitant]
     Active Substance: LORATADINE
  4. BACLOFEN [Concomitant]
     Active Substance: BACLOFEN
  5. BACLOFEN [Concomitant]
     Active Substance: BACLOFEN
  6. BIOTIN [BIOTIN;CALCIUM PHOSPHATE DIBASIC] [Concomitant]
  7. PROGESTERONE [Concomitant]
     Active Substance: PROGESTERONE
  8. TRIAMTERENE [Concomitant]
     Active Substance: TRIAMTERENE
  9. FLUOXETINE [Concomitant]
     Active Substance: FLUOXETINE HYDROCHLORIDE
  10. BACTRIM [Concomitant]
     Active Substance: SULFAMETHOXAZOLE\TRIMETHOPRIM
  11. ESOMEPRAZOLE [Concomitant]
     Active Substance: ESOMEPRAZOLE
  12. ZINC [Concomitant]
     Active Substance: ZINC
  13. VITAMIN D NOS [Concomitant]
     Active Substance: VITAMIN D NOS
  14. .ALPHA.-TOCOPHEROL [Concomitant]
     Active Substance: .ALPHA.-TOCOPHEROL
  15. VITAMIN B [Concomitant]
     Active Substance: VITAMIN B
  16. MTV [Concomitant]
  17. 3 OMEGAS [Concomitant]
  18. ASPIRIN [Concomitant]
     Active Substance: ASPIRIN
  19. VITAMIN C [Concomitant]
     Active Substance: ASCORBIC ACID

REACTIONS (19)
  - Sinus disorder [Unknown]
  - Headache [Unknown]
  - Nasal congestion [Unknown]
  - Fatigue [Unknown]
  - Decreased appetite [Unknown]
  - Dizziness [Unknown]
  - Blood cholesterol increased [Unknown]
  - Hypopnoea [Unknown]
  - Hernia repair [Unknown]
  - Hernia [Unknown]
  - Drug hypersensitivity [Unknown]
  - Hysterectomy [Unknown]
  - Blood pressure increased [Unknown]
  - Nausea [Unknown]
  - Diarrhoea [Unknown]
  - Alopecia [Unknown]
  - Mass [Not Recovered/Not Resolved]
  - Dry skin [Not Recovered/Not Resolved]
  - Atrioventricular block [Not Recovered/Not Resolved]

NARRATIVE: CASE EVENT DATE: 20220101
